FAERS Safety Report 8090423-4 (Version None)
Quarter: 2012Q1

REPORT INFORMATION
  Report Type: 
  Country: None (occurrence: None)
  Receive Date: 20120129
  Receipt Date: 20111201
  Transmission Date: 20120608
  Serious: No
  Sender: FDA-Public Use
  Company Number: US-ABBOTT-11P-163-0879890-00

PATIENT
  Sex: Male
  Weight: 107.14 kg

DRUGS (9)
  1. UNKNOWN MEDICATION [Concomitant]
     Indication: ANXIETY
  2. UNKNOWN MEDICATION [Concomitant]
     Indication: PAIN
  3. UNKNOWN MEDICATION [Concomitant]
     Indication: INSOMNIA
  4. HUMIRA [Suspect]
     Indication: CROHN'S DISEASE
     Route: 058
     Dates: start: 20100101
  5. UNKNOWN MEDICATION [Concomitant]
     Indication: HYPERTENSION
  6. VITAMIN D [Concomitant]
     Indication: BONE DISORDER
  7. CALCIUM [Concomitant]
     Indication: BONE DISORDER
  8. HUMIRA [Suspect]
     Indication: ANKYLOSING SPONDYLITIS
  9. PREDNISONE TAB [Concomitant]
     Indication: CROHN'S DISEASE
     Dates: end: 20110801

REACTIONS (3)
  - ARTHRALGIA [None]
  - HERPES ZOSTER [None]
  - JOINT STIFFNESS [None]
